FAERS Safety Report 19661855 (Version 2)
Quarter: 2021Q3

REPORT INFORMATION
  Report Type: Spontaneous
  Country: US (occurrence: US)
  Receive Date: 20210805
  Receipt Date: 20210810
  Transmission Date: 20211014
  Serious: No
  Sender: FDA-Public Use
  Company Number: US-PFIZER INC-2018291769

PATIENT
  Age: 16 Year
  Sex: Male
  Weight: 48.53 kg

DRUGS (4)
  1. GENOTROPIN [Suspect]
     Active Substance: SOMATROPIN
     Indication: GROWTH HORMONE DEFICIENCY
     Dosage: 1.8 MG, DAILY
  2. GENOTROPIN [Suspect]
     Active Substance: SOMATROPIN
     Dosage: UNK, CYCLIC(2.4 INJECTED 6 DAYS A WEEK, OFF ONE DAY)
  3. GENOTROPIN [Suspect]
     Active Substance: SOMATROPIN
     Dosage: 2.6 MG(2.6 MG 6 NIGHT WEEK INJECTION )
  4. GENOTROPIN [Suspect]
     Active Substance: SOMATROPIN
     Dosage: 1.8 MG, UNK (6 DAYS A WEEK)
     Dates: start: 20170311

REACTIONS (2)
  - Device malfunction [Unknown]
  - Drug dose omission by device [Unknown]
